FAERS Safety Report 18579558 (Version 2)
Quarter: 2021Q1

REPORT INFORMATION
  Report Type: Spontaneous
  Country: US (occurrence: US)
  Receive Date: 20201204
  Receipt Date: 20210107
  Transmission Date: 20210419
  Serious: Yes (Death)
  Sender: FDA-Public Use
  Company Number: US-PFIZER INC-2019450790

PATIENT
  Age: 86 Year
  Sex: Male
  Weight: 99.82 kg

DRUGS (2)
  1. RETACRIT [Suspect]
     Active Substance: EPOETIN ALFA-EPBX
     Indication: ANAEMIA
     Dosage: UNK, MONTHLY (40000 IU/ML EVERY MONTH)
  2. RETACRIT [Suspect]
     Active Substance: EPOETIN ALFA-EPBX
     Dosage: 2 ML, UNK (10,000 IU/ML, TAKE 2 MILLILITERS EVERY 2 WEEKS)

REACTIONS (2)
  - Death [Fatal]
  - Off label use [Unknown]
